FAERS Safety Report 4377872-2 (Version None)
Quarter: 2004Q2

REPORT INFORMATION
  Report Type: 
  Country: None (occurrence: None)
  Receive Date: 20040601
  Receipt Date: 20040212
  Transmission Date: 20050107
  Serious: No
  Sender: FDA-Public Use
  Company Number: WAES 0402USA00993

PATIENT
  Age: 80 Year
  Sex: Female
  Weight: 74.3899 kg

DRUGS (7)
  1. ZETIA [Suspect]
     Indication: BLOOD CHOLESTEROL INCREASED
     Dosage: 10 MG/DAILY/PO
     Route: 048
     Dates: start: 20030207, end: 20030221
  2. COUMADIN [Concomitant]
  3. DIGITEK [Concomitant]
  4. LASIX [Concomitant]
  5. LIPITOR [Concomitant]
  6. TRICOR [Concomitant]
  7. GLYBURIDE [Concomitant]

REACTIONS (3)
  - DYSPEPSIA [None]
  - INSOMNIA [None]
  - NERVOUSNESS [None]
